FAERS Safety Report 8557662 (Version 3)
Quarter: 2013Q4

REPORT INFORMATION
  Report Type: Spontaneous
  Country: US (occurrence: US)
  Receive Date: 20120511
  Receipt Date: 20131217
  Transmission Date: 20140711
  Serious: Yes (Other)
  Sender: FDA-Public Use
  Company Number: US-ASTRAZENECA-2012SE28282

PATIENT
  Age: 48 Year
  Sex: Male

DRUGS (2)
  1. PULMICORT [Suspect]
     Route: 055
  2. PULMICORT [Suspect]
     Route: 055
     Dates: end: 20131207

REACTIONS (6)
  - Obstructive airways disorder [Unknown]
  - Dyspnoea [Unknown]
  - Malaise [Unknown]
  - Multiple allergies [Unknown]
  - Drug dose omission [Not Recovered/Not Resolved]
  - Intentional drug misuse [Not Recovered/Not Resolved]
